FAERS Safety Report 17236501 (Version 4)
Quarter: 2020Q4

REPORT INFORMATION
  Report Type: Report from Study
  Country: US (occurrence: US)
  Receive Date: 20200106
  Receipt Date: 20201202
  Transmission Date: 20210113
  Serious: Yes (Hospitalization, Other)
  Sender: FDA-Public Use
  Company Number: NVSC2019US084978

PATIENT
  Sex: Female

DRUGS (1)
  1. ZOLGENSMA [Suspect]
     Active Substance: ONASEMNOGENE ABEPARVOVEC-XIOI
     Indication: SPINAL MUSCULAR ATROPHY
     Dosage: UNK
     Route: 042
     Dates: start: 20190902

REACTIONS (6)
  - Asthenia [Recovering/Resolving]
  - Therapy non-responder [Recovering/Resolving]
  - Oxygen saturation decreased [Recovering/Resolving]
  - Viral infection [Unknown]
  - Vomiting projectile [Unknown]
  - Increased bronchial secretion [Unknown]
